FAERS Safety Report 15927215 (Version 1)
Quarter: 2019Q1

REPORT INFORMATION
  Report Type: Spontaneous
  Country: FR (occurrence: FR)
  Receive Date: 20190206
  Receipt Date: 20190206
  Transmission Date: 20190417
  Serious: Yes (Hospitalization)
  Sender: FDA-Public Use
  Company Number: PHHY2019FR024234

PATIENT
  Age: 70 Year
  Sex: Male
  Weight: 63 kg

DRUGS (2)
  1. DOCETAXEL. [Suspect]
     Active Substance: DOCETAXEL
     Indication: BREAST CANCER
     Dosage: 75 MG/M2, CYCLIC
     Route: 042
     Dates: start: 20180628, end: 20180830
  2. CYCLOPHOSPHAMIDE. [Suspect]
     Active Substance: CYCLOPHOSPHAMIDE
     Indication: BREAST CANCER
     Dosage: 600 MG/M2, CYCLIC
     Route: 042
     Dates: start: 20180628, end: 20180830

REACTIONS (4)
  - Lung disorder [Recovered/Resolved]
  - Weight decreased [Recovering/Resolving]
  - Gastrointestinal disorder [Recovered/Resolved]
  - Decreased appetite [Recovering/Resolving]

NARRATIVE: CASE EVENT DATE: 201807
